FAERS Safety Report 6574320-9 (Version None)
Quarter: 2010Q1

REPORT INFORMATION
  Report Type: 
  Country: None (occurrence: None)
  Receive Date: 20100208
  Receipt Date: 20100202
  Transmission Date: 20100710
  Serious: Yes (Death)
  Sender: FDA-Public Use
  Company Number: JP-ROCHE-684003

PATIENT
  Sex: Male
  Weight: 56 kg

DRUGS (8)
  1. MYCOPHENOLATE MOFETIL [Suspect]
     Indication: PROPHYLAXIS AGAINST TRANSPLANT REJECTION
     Dosage: DOSE DECREASED
     Route: 048
     Dates: start: 20060901, end: 20081120
  2. MYCOPHENOLATE MOFETIL [Suspect]
     Route: 048
     Dates: start: 20081121, end: 20091208
  3. NEORAL [Concomitant]
     Route: 048
     Dates: start: 20050514, end: 20090917
  4. PROGRAF [Concomitant]
     Route: 048
     Dates: start: 20090918, end: 20091208
  5. UNSPECIFIED DRUG [Concomitant]
     Route: 042
     Dates: start: 20050514, end: 20050517
  6. MEDROL [Concomitant]
     Route: 048
     Dates: start: 20050514, end: 20070317
  7. MIYA BM [Concomitant]
     Route: 048
     Dates: start: 20081120, end: 20091208
  8. MONILAC [Concomitant]
     Route: 048
     Dates: start: 20091013, end: 20091208

REACTIONS (1)
  - BILE DUCT CANCER [None]
